FAERS Safety Report 5611160-9 (Version None)
Quarter: 2008Q1

REPORT INFORMATION
  Report Type: 
  Country: None (occurrence: None)
  Receive Date: 20080129
  Receipt Date: 20080115
  Transmission Date: 20080703
  Serious: Yes (Life-Threatening)
  Sender: FDA-Public Use
  Company Number: TRP_01017_2008

PATIENT
  Sex: Male
  Weight: 96.6162 kg

DRUGS (8)
  1. RIBASPHERE/RIBAVARIN/THREE RIVERS PHARMA ALFA-2B/SCHERING-PLOUGH [Suspect]
     Indication: HEPATITIS C
     Dosage: 1200 MG QD;ORAL
     Route: 048
     Dates: start: 20070710, end: 20070729
  2. PEG-INTRON [Suspect]
     Indication: HEPATITIS C
     Dosage: 150 UG 1X/WEEK; SUBCUTANEOUS
     Route: 058
     Dates: start: 20070710, end: 20071226
  3. NEXIUM [Concomitant]
  4. BACITRACIN [Concomitant]
  5. TYLENOL (CAPLET) [Concomitant]
  6. IBUPROFEN [Concomitant]
  7. LEXAPRO [Concomitant]
  8. REQUIP [Concomitant]

REACTIONS (7)
  - ALCOHOL POISONING [None]
  - ALOPECIA [None]
  - CHEILITIS [None]
  - DEPRESSION [None]
  - NEUTROPENIA [None]
  - PNEUMONIA [None]
  - RESTLESS LEGS SYNDROME [None]
